FAERS Safety Report 24583195 (Version 1)
Quarter: 2024Q4

REPORT INFORMATION
  Report Type: Spontaneous
  Country: GB (occurrence: GB)
  Receive Date: 20241106
  Receipt Date: 20241106
  Transmission Date: 20250114
  Serious: Yes (Death, Life-Threatening, Other)
  Sender: GILEAD
  Company Number: None

PATIENT
  Age: 43 Year

DRUGS (1)
  1. BIKTARVY [Suspect]
     Active Substance: BICTEGRAVIR SODIUM\EMTRICITABINE\TENOFOVIR ALAFENAMIDE FUMARATE
     Indication: Adverse drug reaction
     Dosage: BIKTARVY 50/200/25MG TABLET PK30
     Route: 065

REACTIONS (1)
  - Death [Fatal]
